FAERS Safety Report 7743067-5 (Version None)
Quarter: 2011Q3

REPORT INFORMATION
  Report Type: 
  Country: None (occurrence: None)
  Receive Date: 20110912
  Receipt Date: 20110905
  Transmission Date: 20111222
  Serious: Yes (Hospitalization)
  Sender: FDA-Public Use
  Company Number: JP-ROCHE-779623

PATIENT
  Sex: Female
  Weight: 54 kg

DRUGS (16)
  1. ACTEMRA [Suspect]
     Route: 042
     Dates: start: 20091228, end: 20091228
  2. ACTEMRA [Suspect]
     Route: 042
     Dates: start: 20090907, end: 20090907
  3. ACTEMRA [Suspect]
     Route: 042
     Dates: start: 20091005, end: 20091005
  4. ACTEMRA [Suspect]
     Route: 042
     Dates: start: 20091201, end: 20091201
  5. ACTEMRA [Suspect]
     Route: 042
     Dates: start: 20100309, end: 20100309
  6. RHEUMATREX [Concomitant]
     Route: 048
     Dates: start: 20090714, end: 20090807
  7. PROGRAF [Concomitant]
     Dosage: DOSE FORM: PERORAL AGENT.
     Route: 048
     Dates: end: 20090323
  8. ACTEMRA [Suspect]
     Indication: RHEUMATOID ARTHRITIS
     Route: 042
     Dates: start: 20090128, end: 20090807
  9. ACTEMRA [Suspect]
     Route: 042
     Dates: start: 20100125, end: 20100125
  10. PROGRAF [Concomitant]
     Route: 048
     Dates: start: 20090324, end: 20090420
  11. PROGRAF [Concomitant]
     Route: 048
     Dates: start: 20090421, end: 20090518
  12. ACTEMRA [Suspect]
     Route: 042
     Dates: start: 20091102, end: 20091102
  13. MUCOSTA [Concomitant]
     Dosage: DOSE FORM: PERORAL AGENT
     Route: 048
     Dates: end: 20090615
  14. FOLIC ACID [Concomitant]
     Route: 048
     Dates: end: 20090713
  15. RHEUMATREX [Concomitant]
     Route: 048
     Dates: start: 20090616, end: 20090713
  16. OSTELUC [Concomitant]
     Route: 048
     Dates: end: 20090615

REACTIONS (1)
  - ULNA FRACTURE [None]
